FAERS Safety Report 9509352 (Version 1)
Quarter: 2013Q3

REPORT INFORMATION
  Report Type: Spontaneous
  Country: US (occurrence: US)
  Receive Date: 20130909
  Receipt Date: 20130909
  Transmission Date: 20140515
  Serious: Yes (Other)
  Sender: FDA-Public Use
  Company Number: US-BRISTOL-MYERS SQUIBB COMPANY-18994376

PATIENT
  Age: 54 Year
  Sex: Female

DRUGS (4)
  1. ABILIFY [Suspect]
     Indication: DEPRESSION
     Dates: start: 201212
  2. OXYCODONE [Concomitant]
     Dosage: 1DF=10/325MG
  3. LYRICA [Concomitant]
  4. PRISTIQ [Concomitant]

REACTIONS (2)
  - Diabetes mellitus [Unknown]
  - Blood cholesterol increased [Recovered/Resolved]
